FAERS Safety Report 9917542 (Version 3)
Quarter: 2014Q2

REPORT INFORMATION
  Report Type: Report from Study
  Country: DE (occurrence: DE)
  Receive Date: 20140221
  Receipt Date: 20140619
  Transmission Date: 20141212
  Serious: Yes (Death, Life-Threatening, Disabling)
  Sender: FDA-Public Use
  Company Number: DE-SA-CLOF-1001799

PATIENT
  Age: 2 Year
  Sex: Male
  Weight: 14.8 kg

DRUGS (23)
  1. EVOLTRA [Suspect]
     Indication: ACUTE LYMPHOCYTIC LEUKAEMIA
     Dosage: 44 MG/M2, QD
     Route: 042
     Dates: start: 20110810, end: 20110814
  2. FLUDARA [Suspect]
     Indication: ACUTE LYMPHOCYTIC LEUKAEMIA
     Dosage: UNK
     Route: 065
     Dates: start: 20110906, end: 20110912
  3. FLUDARA [Suspect]
     Indication: BONE MARROW CONDITIONING REGIMEN
     Dosage: UNK
     Route: 065
     Dates: start: 20110906, end: 20110912
  4. ETOPOPHOS [Suspect]
     Indication: ACUTE LYMPHOCYTIC LEUKAEMIA
     Dosage: UNK
     Route: 065
     Dates: start: 20110810, end: 20110814
  5. CYCLOPHOSPHAMIDE [Suspect]
     Indication: ACUTE LYMPHOCYTIC LEUKAEMIA
     Dosage: UNK
     Route: 065
     Dates: start: 20110810, end: 20110814
  6. THIOTEPA [Suspect]
     Indication: ACUTE LYMPHOCYTIC LEUKAEMIA
     Dosage: UNK
     Route: 065
     Dates: start: 20110906, end: 20110912
  7. THIOTEPA [Suspect]
     Indication: STEM CELL TRANSPLANT
     Dosage: UNK
     Route: 065
     Dates: start: 20110906, end: 20110912
  8. ANTITHYMOCYTE IMMUNOGLOBULIN [Suspect]
     Indication: ACUTE LYMPHOCYTIC LEUKAEMIA
     Dosage: UNK
     Route: 065
     Dates: start: 20110906, end: 20110912
  9. ANTITHYMOCYTE IMMUNOGLOBULIN [Suspect]
     Indication: STEM CELL TRANSPLANT
     Dosage: UNK
     Route: 065
     Dates: start: 20110906, end: 20110912
  10. TREOSULFAN [Suspect]
     Indication: ACUTE LYMPHOCYTIC LEUKAEMIA
     Dosage: UNK
     Route: 065
     Dates: start: 20110906, end: 20110912
  11. TREOSULFAN [Suspect]
     Indication: STEM CELL TRANSPLANT
     Dosage: UNK
     Route: 065
     Dates: start: 20110906, end: 20110912
  12. AMIKACIN [Concomitant]
     Indication: INFECTION
     Dosage: 200 MG, UNK
     Dates: start: 20110916, end: 20110921
  13. AMIKACIN [Concomitant]
     Indication: FEBRILE NEUTROPENIA
     Dosage: 200 MG, UNK
     Dates: start: 20110916, end: 20110921
  14. TIGECYCLINE [Concomitant]
     Indication: INFECTION
     Dosage: 20 MG, UNK
     Dates: start: 20110920, end: 20110921
  15. TIGECYCLINE [Concomitant]
     Indication: FEBRILE NEUTROPENIA
     Dosage: 20 MG, UNK
     Dates: start: 20110920, end: 20110921
  16. ZYVOXID [Concomitant]
     Indication: INFECTION
     Dosage: 330 MG, UNK
     Dates: start: 20110906, end: 20110921
  17. ZYVOXID [Concomitant]
     Indication: FEBRILE NEUTROPENIA
     Dosage: 330 MG, UNK
     Dates: start: 20110906, end: 20110921
  18. GRANOCYTE [Concomitant]
     Indication: INFECTION
     Dosage: 80 MG, UNK
     Dates: start: 20110919, end: 20110921
  19. GRANOCYTE [Concomitant]
     Indication: FEBRILE NEUTROPENIA
     Dosage: 80 MG, UNK
     Dates: start: 20110919, end: 20110921
  20. ACICLOVIR [Concomitant]
     Indication: INFECTION
     Dosage: 1500 MG, UNK
     Dates: start: 20110913, end: 20110921
  21. ACICLOVIR [Concomitant]
     Indication: FEBRILE NEUTROPENIA
     Dosage: 1500 MG, UNK
     Dates: start: 20110913, end: 20110921
  22. CYCLOSPORINE [Concomitant]
     Indication: PROPHYLAXIS AGAINST GRAFT VERSUS HOST DISEASE
     Dosage: 60 MG, UNK
     Dates: start: 20110914, end: 20110921
  23. PREDNISOLONE [Concomitant]
     Indication: PROPHYLAXIS AGAINST GRAFT VERSUS HOST DISEASE
     Dosage: 18 MG, UNK
     Dates: start: 20110913, end: 20110921

REACTIONS (3)
  - Neutropenic infection [Fatal]
  - Peritonitis bacterial [Not Recovered/Not Resolved]
  - Sepsis [Not Recovered/Not Resolved]
